FAERS Safety Report 21009868 (Version 1)
Quarter: 2022Q2

REPORT INFORMATION
  Report Type: Spontaneous
  Country: US (occurrence: US)
  Receive Date: 20220627
  Receipt Date: 20220627
  Transmission Date: 20220721
  Serious: No
  Sender: FDA-Public Use
  Company Number: US-PFIZER INC-202200889936

PATIENT
  Age: 75 Year
  Sex: Male

DRUGS (1)
  1. XANAX [Suspect]
     Active Substance: ALPRAZOLAM
     Dosage: 1.5 MG, DAILY (1MG 1.5 TABLETS A DAY)

REACTIONS (2)
  - Poor quality sleep [Unknown]
  - Fatigue [Unknown]
